FAERS Safety Report 5957191-0 (Version None)
Quarter: 2008Q4

REPORT INFORMATION
  Report Type: 
  Country: None (occurrence: None)
  Receive Date: 20081117
  Receipt Date: 20081117
  Transmission Date: 20090506
  Serious: Yes (Death, Life-Threatening, Hospitalization)
  Sender: FDA-Public Use
  Company Number: None

PATIENT
  Age: 41 Year
  Sex: Male
  Weight: 135.6255 kg

DRUGS (5)
  1. ERBITUX [Suspect]
     Indication: COLON CANCER METASTATIC
     Dosage: 1250 MG IVPB
     Route: 040
  2. ERBITUX [Suspect]
     Indication: METASTASES TO LIVER
     Dosage: 1250 MG IVPB
     Route: 040
  3. ERBITUX [Suspect]
     Indication: METASTASES TO LUNG
  4. ELOXATIN [Concomitant]
  5. LEUCOVORIN CALCIUM [Concomitant]

REACTIONS (10)
  - AGITATION [None]
  - BRUXISM [None]
  - CYANOSIS [None]
  - DYSPNOEA [None]
  - EAR PRURITUS [None]
  - EYE ROLLING [None]
  - FALL [None]
  - INFUSION RELATED REACTION [None]
  - PRURITUS [None]
  - URINARY INCONTINENCE [None]
